FAERS Safety Report 4778840-9 (Version None)
Quarter: 2005Q3

REPORT INFORMATION
  Report Type: 
  Country: None (occurrence: None)
  Receive Date: 20050922
  Receipt Date: 20050912
  Transmission Date: 20060218
  Serious: Yes (Hospitalization)
  Sender: FDA-Public Use
  Company Number: 12339

PATIENT
  Age: 80 Year
  Sex: Female

DRUGS (3)
  1. FLUPHENAZINE DECANOATE [Suspect]
  2. RISPERDAL [Suspect]
     Dosage: 1 MG BID
  3. RISPERDAL [Suspect]
     Dosage: 1 MG DAILY

REACTIONS (4)
  - CIRCULATORY COLLAPSE [None]
  - FALL [None]
  - HYPERTENSION [None]
  - URINARY TRACT INFECTION [None]
